FAERS Safety Report 9726487 (Version 1)
Quarter: 2014Q2

REPORT INFORMATION
  Report Type: Spontaneous
  Country: US (occurrence: None)
  Receive Date: 20131202
  Receipt Date: 20131202
  Transmission Date: 20141212
  Serious: Yes (Hospitalization)
  Sender: FDA-Public Use
  Company Number: None

PATIENT
  Age: 61 Year
  Sex: Male
  Weight: 102 kg

DRUGS (4)
  1. LEUCOVORIN [Suspect]
     Indication: PANCREATIC CARCINOMA
     Dosage: LEUCOVORIN 400MG/M2 = 924MG ON D1C1 WAS 11/20/13
     Dates: start: 20131120
  2. OXALIPLATIN [Suspect]
     Indication: PANCREATIC CARCINOMA
     Dosage: OXALIPLATIN 85MG/M2 = 196MG IV ON C1 D1 =11/20/13
     Route: 042
     Dates: start: 20131120
  3. FLUOROURACIL [Suspect]
     Indication: PANCREATIC CARCINOMA
     Dosage: 5FU 1,200MG/M2/D = 2772MG/D, CONT. IV INF OVER 46 HRS D 1-2
  4. ABRAXANE [Suspect]
     Indication: PANCREATIC CARCINOMA
     Dosage: ABRAXANE 150MG/M2 = 346MG IV OVER 1 H. C1D1 = 11/20/13
     Route: 042
     Dates: start: 20131120

REACTIONS (6)
  - Nausea [None]
  - Vomiting [None]
  - Diarrhoea [None]
  - Confusional state [None]
  - Hypophagia [None]
  - Renal failure acute [None]
